FAERS Safety Report 5657905-3 (Version None)
Quarter: 2008Q1

REPORT INFORMATION
  Report Type: 
  Country: None (occurrence: None)
  Receive Date: 20080310
  Receipt Date: 20080306
  Transmission Date: 20080703
  Serious: Yes (Death, Other)
  Sender: FDA-Public Use
  Company Number: PHHY2008JP02721

PATIENT

DRUGS (3)
  1. OXYCONTIN [Suspect]
     Route: 048
  2. DIURETICS [Concomitant]
  3. ZOMETA [Suspect]
     Indication: HYPERCALCAEMIA OF MALIGNANCY
     Dosage: 4 MG
     Route: 042
     Dates: start: 20071201

REACTIONS (2)
  - CACHEXIA [None]
  - PLEURAL EFFUSION [None]
